FAERS Safety Report 7656584-3 (Version None)
Quarter: 2011Q3

REPORT INFORMATION
  Report Type: 
  Country: None (occurrence: None)
  Receive Date: 20110804
  Receipt Date: 20110511
  Transmission Date: 20111222
  Serious: No
  Sender: FDA-Public Use
  Company Number: US-BAUSCH-2011BL003091

PATIENT
  Age: 78 Year
  Sex: Female

DRUGS (2)
  1. OPCON-A [Suspect]
     Indication: EYE PRURITUS
     Route: 047
     Dates: start: 20110505, end: 20110505
  2. OPCON-A [Suspect]
     Route: 047
     Dates: start: 20110510, end: 20110511

REACTIONS (3)
  - EYE IRRITATION [None]
  - CONDITION AGGRAVATED [None]
  - EYE PRURITUS [None]
